FAERS Safety Report 9386591 (Version 4)
Quarter: 2013Q3

REPORT INFORMATION
  Report Type: Spontaneous
  Country: FR (occurrence: FR)
  Receive Date: 20130708
  Receipt Date: 20130911
  Transmission Date: 20140515
  Serious: Yes (Death, Hospitalization)
  Sender: FDA-Public Use
  Company Number: FR-TEVA-414469ISR

PATIENT
  Age: 87 Year
  Sex: Male

DRUGS (13)
  1. FUROSEMIDE TEVA 40 MG, COMPRIME SECABLE [Suspect]
     Dosage: 40 MILLIGRAM DAILY;
     Route: 048
     Dates: start: 20130522, end: 20130523
  2. FUROSEMIDE TEVA 40 MG, COMPRIME SECABLE [Suspect]
     Dosage: 60 MILLIGRAM DAILY;
     Route: 048
     Dates: start: 20130523, end: 20130525
  3. FUROSEMIDE TEVA 40 MG, COMPRIME SECABLE [Suspect]
     Dosage: 20 MILLIGRAM DAILY;
     Route: 048
     Dates: start: 20130525
  4. OMEPRAZOLE TEVA [Concomitant]
  5. KARDEGIC [Concomitant]
  6. ATORVASTATINE TEVA [Concomitant]
  7. AMIODARONE TEVA [Concomitant]
  8. RAMIPRIL TEVA [Concomitant]
  9. METOPROLOL SANDOZ [Concomitant]
  10. PREVISCAN [Concomitant]
     Dates: start: 201304
  11. VITAMINE K1 [Concomitant]
     Dates: start: 20130528
  12. TRINITRINE MYLAN [Concomitant]
  13. LOXEN [Concomitant]

REACTIONS (8)
  - General physical health deterioration [Fatal]
  - Pulmonary oedema [Recovered/Resolved]
  - Cardiac failure [Recovered/Resolved]
  - Somnolence [Recovered/Resolved]
  - Confusional state [Recovered/Resolved]
  - Hypotonia [Recovered/Resolved]
  - Incoherent [Unknown]
  - Movement disorder [Unknown]
